FAERS Safety Report 24283585 (Version 1)
Quarter: 2024Q3

REPORT INFORMATION
  Report Type: Spontaneous
  Country: BR (occurrence: BR)
  Receive Date: 20240904
  Receipt Date: 20240904
  Transmission Date: 20241017
  Serious: Yes (Hospitalization)
  Sender: JOHNSON AND JOHNSON
  Company Number: BR-JNJFOC-20240882700

PATIENT
  Sex: Male

DRUGS (3)
  1. INVEGA SUSTENNA [Suspect]
     Active Substance: PALIPERIDONE PALMITATE
     Indication: Bipolar disorder
     Dosage: 150MG ON D1, 100MG ON D8 AND 150 DAYS AFTER THE FIRST APPLICATION,
     Route: 030
  2. INVEGA SUSTENNA [Suspect]
     Active Substance: PALIPERIDONE PALMITATE
  3. INVEGA SUSTENNA [Suspect]
     Active Substance: PALIPERIDONE PALMITATE

REACTIONS (3)
  - Hospitalisation [Unknown]
  - Off label use [Unknown]
  - Product prescribing error [Unknown]
